FAERS Safety Report 8273957-9 (Version None)
Quarter: 2012Q2

REPORT INFORMATION
  Report Type: 
  Country: None (occurrence: None)
  Receive Date: 20120411
  Receipt Date: 20120408
  Transmission Date: 20120825
  Serious: Yes (Other)
  Sender: FDA-Public Use
  Company Number: GR-PFIZER INC-2012087908

PATIENT
  Sex: Male

DRUGS (1)
  1. QUINAPRIL [Suspect]
     Dosage: 5 MG, 1X/DAY
     Route: 048
     Dates: start: 20120408

REACTIONS (5)
  - ASTHENIA [None]
  - EYE DISORDER [None]
  - HYPOTENSION [None]
  - BLOOD GLUCOSE INCREASED [None]
  - DIZZINESS [None]
